FAERS Safety Report 7790445-4 (Version None)
Quarter: 2011Q3

REPORT INFORMATION
  Report Type: 
  Country: None (occurrence: None)
  Receive Date: 20110930
  Receipt Date: 20110930
  Transmission Date: 20111222
  Serious: Yes (Other)
  Sender: FDA-Public Use
  Company Number: JP-ABBOTT-11P-087-0858169-00

PATIENT
  Age: 55 Year
  Sex: Female
  Weight: 58 kg

DRUGS (8)
  1. FENTANYL [Concomitant]
     Indication: INDUCTION OF ANAESTHESIA
  2. VECURONIUM BROMIDE [Concomitant]
     Indication: INDUCTION OF ANAESTHESIA
  3. PROPOFOL [Concomitant]
     Indication: INDUCTION OF ANAESTHESIA
  4. NITROUS OXIDE [Concomitant]
     Indication: MAINTENANCE OF ANAESTHESIA
  5. OXYGEN [Concomitant]
     Indication: MAINTENANCE OF ANAESTHESIA
  6. FENTANYL [Concomitant]
     Indication: MAINTENANCE OF ANAESTHESIA
  7. SEVOFLURANE [Suspect]
     Indication: MAINTENANCE OF ANAESTHESIA
     Dosage: 1-1.5%
     Route: 055
  8. DIURETICS [Concomitant]
     Indication: PRODUCT USED FOR UNKNOWN INDICATION

REACTIONS (4)
  - VENTRICULAR EXTRASYSTOLES [None]
  - ELECTROCARDIOGRAM QT PROLONGED [None]
  - TORSADE DE POINTES [None]
  - EXTRASYSTOLES [None]
